FAERS Safety Report 10007037 (Version 1)
Quarter: 2014Q1

REPORT INFORMATION
  Report Type: Spontaneous
  Country: FR (occurrence: None)
  Receive Date: 20140311
  Receipt Date: 20140311
  Transmission Date: 20141002
  Serious: Yes (Hospitalization)
  Sender: FDA-Public Use
  Company Number: FR-014871

PATIENT
  Age: 80 Year
  Sex: Male

DRUGS (1)
  1. FIRMAGON /01764801/FIRMAGON) (240 MG, 80 MG) (NOT SPECIFIED) [Suspect]
     Indication: PROSTATE CANCER METASTATIC
     Route: 058
     Dates: start: 201311, end: 201311

REACTIONS (2)
  - Hypokalaemia [None]
  - Asthenia [None]
